FAERS Safety Report 25063603 (Version 2)
Quarter: 2025Q3

REPORT INFORMATION
  Report Type: Spontaneous
  Country: US (occurrence: US)
  Receive Date: 20250311
  Receipt Date: 20250802
  Transmission Date: 20251020
  Serious: Yes (Disabling, Other)
  Sender: ALEXION PHARMACEUTICALS
  Company Number: US-ASTRAZENECA-202503USA003364US

PATIENT
  Age: 76 Year
  Sex: Female

DRUGS (3)
  1. CRESTOR [Suspect]
     Active Substance: ROSUVASTATIN CALCIUM
     Route: 065
  2. DUPIXENT [Suspect]
     Active Substance: DUPILUMAB
     Indication: Neurodermatitis
  3. AMLODIPINE [Concomitant]
     Active Substance: AMLODIPINE BESYLATE
     Route: 065

REACTIONS (10)
  - Dementia Alzheimer^s type [Unknown]
  - Loss of personal independence in daily activities [Unknown]
  - Syncope [Unknown]
  - Hallucination [Unknown]
  - Condition aggravated [Unknown]
  - Amnesia [Unknown]
  - Salivary hypersecretion [Unknown]
  - Fear of injection [Unknown]
  - Cough [Recovering/Resolving]
  - Inappropriate schedule of product administration [Unknown]

NARRATIVE: CASE EVENT DATE: 20250114
